FAERS Safety Report 16778417 (Version 1)
Quarter: 2019Q3

REPORT INFORMATION
  Report Type: Spontaneous
  Country: DE (occurrence: DE)
  Receive Date: 20190906
  Receipt Date: 20190906
  Transmission Date: 20191005
  Serious: Yes (Life-Threatening, Hospitalization, Other)
  Sender: FDA-Public Use
  Company Number: PHHY2019DE045770

PATIENT
  Age: 50 Year
  Sex: Female
  Weight: 80 kg

DRUGS (5)
  1. ATRACURIUM [Concomitant]
     Active Substance: ATRACURIUM
     Indication: INDUCTION OF ANAESTHESIA
     Dosage: 40 MG, ONCE/SINGLE (TOTAL) (ANWENDUNG UM 09:55 UHR)
     Route: 042
  2. SUFENTANIL [Concomitant]
     Active Substance: SUFENTANIL
     Indication: INDUCTION OF ANAESTHESIA
     Dosage: 25 UG, ONCE/SINGLE (TOTAL) (ANWENDUNG UM 09:50 UHR)
     Route: 042
  3. LEVOFLOXACIN. [Suspect]
     Active Substance: LEVOFLOXACIN
     Indication: ANTIBIOTIC PROPHYLAXIS
     Dosage: 500 MG, (1 TOTAL) (KURZINFUSION, ANWENDUNG VON 10:20 - 10:35 UHR)
     Route: 042
     Dates: start: 20190201
  4. PROPOFOL. [Concomitant]
     Active Substance: PROPOFOL
     Indication: INDUCTION OF ANAESTHESIA
     Dosage: 200 MG, ONCE/SINGLE (TOTAL) (ANWENDUNG UM 09:50 UHR)
     Route: 042
  5. PROPOFOL. [Concomitant]
     Active Substance: PROPOFOL
     Dosage: ANWENDUNG UM 09:50 UHR
     Route: 042

REACTIONS (3)
  - Flushing [Recovered/Resolved]
  - Anaphylactic shock [Recovered/Resolved]
  - Fluid retention [Recovered/Resolved]

NARRATIVE: CASE EVENT DATE: 20190201
